FAERS Safety Report 9499205 (Version 2)
Quarter: 2013Q3

REPORT INFORMATION
  Report Type: Spontaneous
  Country: US (occurrence: US)
  Receive Date: 20130905
  Receipt Date: 20130918
  Transmission Date: 20140515
  Serious: Yes (Other)
  Sender: FDA-Public Use
  Company Number: US-BIOGENIDEC-2013BI082907

PATIENT
  Sex: Female
  Weight: 46 kg

DRUGS (5)
  1. AVONEX [Suspect]
     Indication: MULTIPLE SCLEROSIS
     Route: 030
     Dates: start: 20080517
  2. AVONEX [Suspect]
     Indication: MULTIPLE SCLEROSIS
     Route: 030
     Dates: start: 2011
  3. AMPYRA [Concomitant]
     Route: 048
  4. LAMICTAL [Concomitant]
     Route: 048
  5. LAMICTAL [Concomitant]
     Route: 048

REACTIONS (2)
  - Spinal osteoarthritis [Unknown]
  - Epilepsy [Not Recovered/Not Resolved]
